FAERS Safety Report 9338428 (Version 1)
Quarter: 2013Q2

REPORT INFORMATION
  Report Type: Spontaneous
  Country: US (occurrence: US)
  Receive Date: 20130610
  Receipt Date: 20130610
  Transmission Date: 20140414
  Serious: Yes (Other)
  Sender: FDA-Public Use
  Company Number: US-PFIZER INC-2013173342

PATIENT
  Age: 26 Year
  Sex: Female
  Weight: 105.22 kg

DRUGS (3)
  1. LYRICA [Suspect]
     Dosage: 75 MG, UNK
     Route: 048
  2. LYRICA [Suspect]
     Dosage: 100 MG, UNK
     Route: 048
  3. OXYCODONE [Concomitant]
     Dosage: 20 MG, UNK

REACTIONS (3)
  - Intervertebral disc disorder [Unknown]
  - Dysuria [Unknown]
  - Pain [Unknown]
